FAERS Safety Report 23886586 (Version 1)
Quarter: 2024Q2

REPORT INFORMATION
  Report Type: Spontaneous
  Country: US (occurrence: US)
  Receive Date: 20240522
  Receipt Date: 20240522
  Transmission Date: 20240716
  Serious: No
  Sender: FDA-Public Use
  Company Number: US-BRISTOL-MYERS SQUIBB COMPANY-2024-076562

PATIENT
  Age: 80 Year
  Sex: Female
  Weight: 195.2 kg

DRUGS (2)
  1. ELIQUIS [Suspect]
     Active Substance: APIXABAN
     Indication: Product used for unknown indication
     Dates: start: 20240227
  2. ELIQUIS [Suspect]
     Active Substance: APIXABAN
     Dosage: ONE TABLET
     Dates: start: 20240227

REACTIONS (2)
  - Back pain [Unknown]
  - Arthralgia [Unknown]
